FAERS Safety Report 6916638-3 (Version None)
Quarter: 2010Q3

REPORT INFORMATION
  Report Type: 
  Country: None (occurrence: None)
  Receive Date: 20100809
  Receipt Date: 20100809
  Transmission Date: 20110219
  Serious: Yes (Other)
  Sender: FDA-Public Use
  Company Number: None

PATIENT
  Age: 39 Year
  Sex: Female
  Weight: 83.0083 kg

DRUGS (1)
  1. TACROLIMUS [Suspect]
     Dosage: 1 MG TID ORAL
     Route: 048

REACTIONS (1)
  - DRUG INTOLERANCE [None]
